FAERS Safety Report 5078841-X (Version None)
Quarter: 2006Q3

REPORT INFORMATION
  Report Type: 
  Country: None (occurrence: None)
  Receive Date: 20060814
  Receipt Date: 20051207
  Transmission Date: 20061208
  Serious: Yes (Other)
  Sender: FDA-Public Use
  Company Number: US-BAYER-200514915BCC

PATIENT
  Age: 37 Year
  Sex: Male
  Weight: 78 kg

DRUGS (4)
  1. ALEVE [Suspect]
     Indication: HEADACHE
     Route: 048
     Dates: start: 20040101
  2. TRAMADOL HCL [Concomitant]
     Indication: PAIN
  3. CLONAZEPAM [Concomitant]
     Indication: SLEEP DISORDER
  4. GUAIFENESIN [Concomitant]
     Indication: PAIN

REACTIONS (4)
  - ANGER [None]
  - DISTURBANCE IN ATTENTION [None]
  - MOOD ALTERED [None]
  - SUICIDAL IDEATION [None]
